FAERS Safety Report 4878811-8 (Version None)
Quarter: 2006Q1

REPORT INFORMATION
  Report Type: 
  Country: None (occurrence: None)
  Receive Date: 20060110
  Receipt Date: 20060110
  Transmission Date: 20060701
  Serious: Yes (Other)
  Sender: FDA-Public Use
  Company Number: None

PATIENT
  Age: 4 Year
  Sex: Male
  Weight: 17.2367 kg

DRUGS (2)
  1. CEFZIL [Suspect]
     Indication: EAR INFECTION
     Dosage: NORMAL DOSE FOR HIS WEIGHT    2 / DAYS   PO
     Route: 048
     Dates: start: 19950405, end: 19950406
  2. DIAL LIQUID SOAP        PROTOR AND GAMBLE ? [Suspect]
     Dosage: TABLESPOON    ONCE    TOP
     Route: 061
     Dates: start: 20051110, end: 20051110

REACTIONS (9)
  - APPLICATION SITE ERYTHEMA [None]
  - CRYING [None]
  - FEELING ABNORMAL [None]
  - FRUSTRATION [None]
  - HYPERSENSITIVITY [None]
  - PHARMACEUTICAL PRODUCT COMPLAINT [None]
  - RASH ERYTHEMATOUS [None]
  - RASH PRURITIC [None]
  - REACTION TO COLOURING [None]
